FAERS Safety Report 25594979 (Version 1)
Quarter: 2025Q3

REPORT INFORMATION
  Report Type: Report from Study
  Country: US (occurrence: US)
  Receive Date: 20250723
  Receipt Date: 20250723
  Transmission Date: 20251021
  Serious: Yes (Hospitalization, Other)
  Sender: TAKEDA
  Company Number: US-TAKEDA-2025TUS056360

PATIENT
  Sex: Male

DRUGS (28)
  1. PONATINIB [Suspect]
     Active Substance: PONATINIB
     Indication: Philadelphia positive acute lymphocytic leukaemia
     Dosage: 30 MILLIGRAM, QD
  2. PONATINIB [Suspect]
     Active Substance: PONATINIB
     Indication: Acute lymphocytic leukaemia
     Dosage: 30 MILLIGRAM, QD
  3. DOCUSATE CALCIUM [Concomitant]
     Active Substance: DOCUSATE CALCIUM
  4. FUROSEMIDE [Concomitant]
     Active Substance: FUROSEMIDE
  5. HYDROCORTISONE [Concomitant]
     Active Substance: HYDROCORTISONE
  6. HYDROMORPHONE HCL [Concomitant]
     Active Substance: HYDROMORPHONE HYDROCHLORIDE
  7. SODIUM BICARBONATE [Concomitant]
     Active Substance: SODIUM BICARBONATE
  8. BETAMETHASONE [Concomitant]
     Active Substance: BETAMETHASONE
  9. ASPIRIN [Concomitant]
     Active Substance: ASPIRIN
  10. CLONAZEPAM [Concomitant]
     Active Substance: CLONAZEPAM
  11. FENTANYL [Concomitant]
     Active Substance: FENTANYL
  12. ZOFRAN [Concomitant]
     Active Substance: ONDANSETRON HYDROCHLORIDE
  13. COMPAZINE [Concomitant]
     Active Substance: PROCHLORPERAZINE MALEATE
  14. CARVEDILOL [Concomitant]
     Active Substance: CARVEDILOL
  15. ACYCLOVIR [Concomitant]
     Active Substance: ACYCLOVIR
  16. CETIRIZINE HYDROCHLORIDE [Concomitant]
     Active Substance: CETIRIZINE HYDROCHLORIDE
  17. BACLOFEN [Concomitant]
     Active Substance: BACLOFEN
  18. BENZONATATE [Concomitant]
     Active Substance: BENZONATATE
  19. SIMVASTATIN [Concomitant]
     Active Substance: SIMVASTATIN
  20. LEVOFLOXACIN [Concomitant]
     Active Substance: LEVOFLOXACIN
  21. BACTRIM [Concomitant]
     Active Substance: SULFAMETHOXAZOLE\TRIMETHOPRIM
  22. EFFEXOR [Concomitant]
     Active Substance: VENLAFAXINE HYDROCHLORIDE
  23. LISINOPRIL [Concomitant]
     Active Substance: LISINOPRIL
  24. LORAZEPAM [Concomitant]
     Active Substance: LORAZEPAM
  25. ZYPREXA [Concomitant]
     Active Substance: OLANZAPINE
  26. OMEPRAZOLE [Concomitant]
     Active Substance: OMEPRAZOLE
  27. GUAIFENESIN [Concomitant]
     Active Substance: GUAIFENESIN
  28. VALACYCLOVIR HYDROCHLORIDE [Concomitant]
     Active Substance: VALACYCLOVIR HYDROCHLORIDE

REACTIONS (4)
  - Visual impairment [Unknown]
  - Cataract [Unknown]
  - Blood bilirubin increased [Recovering/Resolving]
  - Hepatic enzyme increased [Recovering/Resolving]
